FAERS Safety Report 8813149 (Version 1)
Quarter: 2012Q4

REPORT INFORMATION
  Report Type: 
  Country: US (occurrence: US)
  Receive Date: 20120927
  Receipt Date: 20120927
  Transmission Date: 20130627
  Serious: No
  Sender: FDA-Public Use
  Company Number: US-AMGEN-USASP2012037657

PATIENT
  Age: 50 Year
  Sex: Female
  Weight: 54 kg

DRUGS (3)
  1. PROLIA [Suspect]
     Indication: OSTEOPENIA
     Dosage: 60 mg, q6mo
     Route: 058
     Dates: start: 20110728
  2. CALCIUM [Concomitant]
     Indication: UNEVALUABLE EVENT
     Dosage: 600 mg, qd
     Route: 048
     Dates: start: 201001
  3. VITAMIN D [Concomitant]
     Indication: UNEVALUABLE EVENT
     Dosage: 1000 IU, qd
     Route: 048
     Dates: start: 201001

REACTIONS (2)
  - Tendonitis [Not Recovered/Not Resolved]
  - Pain in extremity [Recovered/Resolved]
